FAERS Safety Report 5517403-4 (Version None)
Quarter: 2007Q4

REPORT INFORMATION
  Report Type: 
  Country: None (occurrence: None)
  Receive Date: 20071114
  Receipt Date: 20071031
  Transmission Date: 20080405
  Serious: Yes (Other)
  Sender: FDA-Public Use
  Company Number: GB-RANBAXY-2007RR-11202

PATIENT

DRUGS (1)
  1. SIMVASTATIN 10MG TABLETS [Suspect]
     Dosage: 40 MG, UNK
     Route: 048
     Dates: start: 20071003, end: 20071012

REACTIONS (1)
  - CHEST PAIN [None]
